FAERS Safety Report 4384149-8 (Version None)
Quarter: 2004Q2

REPORT INFORMATION
  Report Type: 
  Country: None (occurrence: None)
  Receive Date: 20040623
  Receipt Date: 20040623
  Transmission Date: 20050107
  Serious: Yes (Other)
  Sender: FDA-Public Use
  Company Number: None

PATIENT
  Sex: Female

DRUGS (1)
  1. CETUXIMAB [Suspect]
     Indication: COLON CANCER
     Dosage: 660 MG ONCE INTRAVENOUS
     Route: 042
     Dates: start: 20040316, end: 20040316

REACTIONS (2)
  - COUGH [None]
  - DYSPNOEA [None]
